FAERS Safety Report 6874517-4 (Version None)
Quarter: 2010Q3

REPORT INFORMATION
  Report Type: 
  Country: None (occurrence: None)
  Receive Date: 20100723
  Receipt Date: 20100723
  Transmission Date: 20110219
  Serious: Yes (Hospitalization)
  Sender: FDA-Public Use
  Company Number: None

PATIENT
  Sex: Male
  Weight: 69.3 kg

DRUGS (4)
  1. FLUOROURACIL [Suspect]
     Dosage: 10304 MG
     Dates: end: 20100624
  2. BEVACIZUMAB (RHUMAB VEGG) [Suspect]
     Dosage: 704 MG
     Dates: end: 20100622
  3. LEUCOVORIN CALCIUM [Suspect]
     Dosage: 1472 MG
     Dates: end: 20100622
  4. ELOXATIN [Suspect]
     Dosage: 312 MG
     Dates: end: 20100622

REACTIONS (3)
  - DUODENITIS [None]
  - GALLBLADDER DISORDER [None]
  - ILEITIS [None]
